FAERS Safety Report 24837277 (Version 1)
Quarter: 2025Q1

REPORT INFORMATION
  Report Type: Spontaneous
  Country: US (occurrence: None)
  Receive Date: 20250111
  Receipt Date: 20250111
  Transmission Date: 20250409
  Serious: Yes (Disabling)
  Sender: FDA-CTU
  Company Number: None

PATIENT
  Age: 88 Year
  Sex: Female

DRUGS (1)
  1. LEQVIO [Suspect]
     Active Substance: INCLISIRAN SODIUM
     Indication: Blood cholesterol

REACTIONS (7)
  - Arthralgia [None]
  - Arthralgia [None]
  - Rash [None]
  - Urticaria [None]
  - Joint swelling [None]
  - Wheelchair user [None]
  - Arthritis [None]

NARRATIVE: CASE EVENT DATE: 20220622
